FAERS Safety Report 16573883 (Version 1)
Quarter: 2019Q3

REPORT INFORMATION
  Report Type: Spontaneous
  Country: JP (occurrence: JP)
  Receive Date: 20190715
  Receipt Date: 20190715
  Transmission Date: 20191004
  Serious: Yes (Death, Other)
  Sender: FDA-Public Use
  Company Number: JP-FERRINGPH-2019FE04250

PATIENT
  Sex: Male

DRUGS (1)
  1. GONAX [Suspect]
     Active Substance: DEGARELIX
     Indication: PROSTATE CANCER
     Dosage: MONTHLY
     Route: 058
     Dates: start: 20190626, end: 20190702

REACTIONS (1)
  - Death [Fatal]

NARRATIVE: CASE EVENT DATE: 20190702
